FAERS Safety Report 11323914 (Version 1)
Quarter: 2015Q3

REPORT INFORMATION
  Report Type: Spontaneous
  Country: US (occurrence: US)
  Receive Date: 20150730
  Receipt Date: 20150730
  Transmission Date: 20151125
  Serious: No
  Sender: FDA-Public Use
  Company Number: US-009507513-1507USA006908

PATIENT
  Weight: 55.78 kg

DRUGS (1)
  1. NEXPLANON [Suspect]
     Active Substance: ETONOGESTREL
     Dosage: 68 MG, EVERY THREE YEARS
     Route: 059
     Dates: start: 20150706

REACTIONS (3)
  - Multiple use of single-use product [Unknown]
  - Product contamination with body fluid [Unknown]
  - No adverse event [Unknown]

NARRATIVE: CASE EVENT DATE: 20150706
